FAERS Safety Report 5046098-1 (Version None)
Quarter: 2006Q3

REPORT INFORMATION
  Report Type: 
  Country: None (occurrence: None)
  Receive Date: 20060710
  Receipt Date: 20060629
  Transmission Date: 20061208
  Serious: Yes (Death)
  Sender: FDA-Public Use
  Company Number: US-JNJFOC-20060606620

PATIENT
  Sex: Male
  Weight: 104.33 kg

DRUGS (6)
  1. REMICADE [Suspect]
     Indication: RHEUMATOID ARTHRITIS
     Route: 042
  2. FOLIC ACID [Concomitant]
  3. NIFEDIPINE [Concomitant]
  4. METHOTREXATE [Concomitant]
  5. ACETAMINOPHEN [Concomitant]
  6. ALLEGRA [Concomitant]
     Indication: PREMEDICATION

REACTIONS (3)
  - DEATH [None]
  - DIZZINESS [None]
  - LOSS OF CONSCIOUSNESS [None]
